FAERS Safety Report 6496252-7 (Version None)
Quarter: 2009Q4

REPORT INFORMATION
  Report Type: 
  Country: None (occurrence: None)
  Receive Date: 20091214
  Receipt Date: 20090115
  Transmission Date: 20100525
  Serious: No
  Sender: FDA-Public Use
  Company Number: US-BRISTOL-MYERS SQUIBB COMPANY-14475347

PATIENT
  Age: 50 Year
  Sex: Male

DRUGS (6)
  1. ABILIFY [Suspect]
     Indication: AFFECTIVE DISORDER
     Dates: start: 20081230, end: 20090105
  2. ABILIFY [Suspect]
     Indication: SOCIAL PHOBIA
     Dates: start: 20081230, end: 20090105
  3. DEXEDRINE [Concomitant]
  4. LITHIUM [Concomitant]
  5. WELLBUTRIN [Concomitant]
  6. LAMICTAL [Concomitant]

REACTIONS (3)
  - DELUSION [None]
  - HALLUCINATIONS, MIXED [None]
  - PARANOIA [None]
